FAERS Safety Report 4830149-0 (Version None)
Quarter: 2005Q4

REPORT INFORMATION
  Report Type: 
  Country: None (occurrence: None)
  Receive Date: 20051117
  Receipt Date: 20050930
  Transmission Date: 20060501
  Serious: Yes (Hospitalization, Other)
  Sender: FDA-Public Use
  Company Number: US-MERCK-0510USA01919

PATIENT
  Age: 49 Year
  Sex: Female
  Weight: 63 kg

DRUGS (9)
  1. VIOXX [Suspect]
     Indication: BACK INJURY
     Route: 048
     Dates: start: 20020621, end: 20020710
  2. VIOXX [Suspect]
     Indication: LIMB DISCOMFORT
     Route: 048
     Dates: start: 20020621, end: 20020710
  3. CELEBREX [Concomitant]
     Route: 065
  4. DEPAKOTE [Concomitant]
     Route: 065
  5. RESPENYL [Concomitant]
     Route: 065
  6. PAXIL [Concomitant]
     Route: 065
  7. XANAX [Concomitant]
     Route: 065
  8. [THERAPY UNSPECIFIED] [Concomitant]
     Route: 065
  9. [THERAPY UNSPECIFIED] [Concomitant]
     Route: 065

REACTIONS (5)
  - ANGINA PECTORIS [None]
  - BIPOLAR I DISORDER [None]
  - HYPERTENSION [None]
  - MENTAL DISORDER [None]
  - MYOCARDIAL INFARCTION [None]
